FAERS Safety Report 8316665-8 (Version None)
Quarter: 2012Q2

REPORT INFORMATION
  Report Type: 
  Country: None (occurrence: None)
  Receive Date: 20120425
  Receipt Date: 20120425
  Transmission Date: 20120825
  Serious: Yes (Other)
  Sender: FDA-Public Use
  Company Number: None

PATIENT
  Sex: Male
  Weight: 109.1 kg

DRUGS (2)
  1. PANTOPRAZOLE [Suspect]
     Indication: GASTRIC DISORDER
     Dosage: 40 MG ONE A DAY BY MOUTH
     Route: 048
     Dates: start: 20120303, end: 20120307
  2. PANTOPRAZOLE [Suspect]
     Indication: DYSPEPSIA
     Dosage: 40 MG ONE A DAY BY MOUTH
     Route: 048
     Dates: start: 20120303, end: 20120307

REACTIONS (5)
  - GASTROOESOPHAGEAL REFLUX DISEASE [None]
  - PRODUCT QUALITY ISSUE [None]
  - PRODUCT SUBSTITUTION ISSUE [None]
  - ABDOMINAL PAIN UPPER [None]
  - CONSTIPATION [None]
